FAERS Safety Report 8410864-2 (Version None)
Quarter: 2012Q2

REPORT INFORMATION
  Report Type: 
  Country: None (occurrence: None)
  Receive Date: 20120605
  Receipt Date: 20120601
  Transmission Date: 20120825
  Serious: Yes (Other)
  Sender: FDA-Public Use
  Company Number: PHEH2012US011188

PATIENT
  Sex: Female

DRUGS (1)
  1. VALTURNA [Suspect]
     Dates: end: 20120529

REACTIONS (1)
  - BLINDNESS [None]
